FAERS Safety Report 5354002-1 (Version None)
Quarter: 2007Q2

REPORT INFORMATION
  Report Type: 
  Country: None (occurrence: None)
  Receive Date: 20070608
  Receipt Date: 20070608
  Transmission Date: 20071010
  Serious: Yes (Life-Threatening, Hospitalization)
  Sender: FDA-Public Use
  Company Number: None

PATIENT
  Age: 84 Year
  Sex: Female

DRUGS (12)
  1. ENOXAPARIN SODIUM [Suspect]
     Indication: DEEP VEIN THROMBOSIS
     Dosage: 50 MG Q12H SQ
     Route: 058
  2. WARFARIN SODIUM [Suspect]
     Indication: DEEP VEIN THROMBOSIS
     Dosage: PO
     Route: 048
  3. PROLOSEC [Concomitant]
  4. AMIODARONE HCL [Concomitant]
  5. COLACE [Concomitant]
  6. OSCAL [Concomitant]
  7. OCEAN NASAL SPRAY [Concomitant]
  8. ZOCOR [Concomitant]
  9. ASPIRIN [Concomitant]
  10. LASIX [Concomitant]
  11. METOPROLOL SUCCINATE [Concomitant]
  12. LISINOPRIL [Concomitant]

REACTIONS (1)
  - HAEMORRHAGE INTRACRANIAL [None]
